FAERS Safety Report 8771937 (Version 2)
Quarter: 2013Q2

REPORT INFORMATION
  Report Type: Report from Study
  Country: CA (occurrence: CA)
  Receive Date: 20120906
  Receipt Date: 20130411
  Transmission Date: 20140414
  Serious: Yes (Hospitalization, Other)
  Sender: FDA-Public Use
  Company Number: CA-JNJFOC-20120813887

PATIENT
  Age: 77 Year
  Sex: Female
  Weight: 50 kg

DRUGS (2)
  1. REMICADE [Suspect]
     Indication: CROHN^S DISEASE
     Route: 042
     Dates: start: 20110927
  2. IMURAN [Concomitant]
     Route: 065

REACTIONS (2)
  - Fistula [Not Recovered/Not Resolved]
  - Intestinal operation [Unknown]
